FAERS Safety Report 14121814 (Version 2)
Quarter: 2017Q4

REPORT INFORMATION
  Report Type: Spontaneous
  Country: US (occurrence: US)
  Receive Date: 20171024
  Receipt Date: 20171122
  Transmission Date: 20180321
  Serious: No
  Sender: FDA-Public Use
  Company Number: US-ASTRAZENECA-2017SF08182

PATIENT
  Sex: Male
  Weight: 99.3 kg

DRUGS (1)
  1. BYDUREON [Suspect]
     Active Substance: EXENATIDE
     Indication: TYPE 2 DIABETES MELLITUS
     Route: 058

REACTIONS (5)
  - Constipation [Not Recovered/Not Resolved]
  - Insurance issue [Recovered/Resolved]
  - Intentional product use issue [Unknown]
  - Device issue [Unknown]
  - Weight loss poor [Unknown]
